FAERS Safety Report 13713233 (Version 1)
Quarter: 2017Q3

REPORT INFORMATION
  Report Type: Spontaneous
  Country: US (occurrence: US)
  Receive Date: 20170704
  Receipt Date: 20170704
  Transmission Date: 20171127
  Serious: No
  Sender: FDA-Public Use
  Company Number: US-TEVA-741301ACC

PATIENT
  Sex: Female

DRUGS (3)
  1. PREDNISONE. [Suspect]
     Active Substance: PREDNISONE
     Dosage: 1 DOSAGE FORMS DAILY;
     Dates: start: 201602, end: 201602
  2. PREDNISONE. [Suspect]
     Active Substance: PREDNISONE
     Indication: COUGH
     Dates: start: 20160201, end: 201602
  3. PREDNISONE. [Suspect]
     Active Substance: PREDNISONE
     Dosage: 2 DOSAGE FORMS DAILY;
     Dates: start: 201602, end: 201602

REACTIONS (5)
  - Dizziness [Unknown]
  - Anxiety [Unknown]
  - Sleep disorder [Unknown]
  - Withdrawal syndrome [Unknown]
  - Feeling jittery [Unknown]

NARRATIVE: CASE EVENT DATE: 20170210
